FAERS Safety Report 10065546 (Version 1)
Quarter: 2014Q2

REPORT INFORMATION
  Report Type: Spontaneous
  Country: US (occurrence: US)
  Receive Date: 20140408
  Receipt Date: 20140408
  Transmission Date: 20141212
  Serious: No
  Sender: FDA-Public Use
  Company Number: US-BAYER-2014-043914

PATIENT
  Age: 72 Year
  Sex: Male

DRUGS (14)
  1. STAXYN (FDT/ODT) [Suspect]
     Indication: ERECTILE DYSFUNCTION
     Dosage: 10 MG, PRN
     Route: 048
     Dates: start: 20140311, end: 20140319
  2. FISH OIL [Concomitant]
  3. CALCIUM [Concomitant]
  4. MAGNESIUM [Concomitant]
  5. ZINC [Concomitant]
  6. BACLOFEN [Concomitant]
     Dosage: 10 MG, UNK
  7. OXYBUTYNIN [Concomitant]
     Dosage: 5 MG, UNK
  8. ASPIRIN [Concomitant]
     Dosage: 325 MG, UNK
  9. OMEPRAZOLE [Concomitant]
     Dosage: 40 MG, UNK
  10. LISINOPRIL [Concomitant]
     Dosage: 10 MG, UNK
  11. LOVASTATIN [Concomitant]
     Dosage: 40 MG, UNK
  12. VITAMIN B12 (CYANOCOBALAMIN AND DERIVATIVES) [Concomitant]
  13. HYDROCHLOROTHIAZIDE [Concomitant]
  14. CHLORPROMAZINE [Concomitant]

REACTIONS (1)
  - Drug effect decreased [None]
